FAERS Safety Report 5132915-3 (Version None)
Quarter: 2006Q4

REPORT INFORMATION
  Report Type: 
  Country: None (occurrence: None)
  Receive Date: 20061023
  Receipt Date: 20061011
  Transmission Date: 20070319
  Serious: Yes (Life-Threatening)
  Sender: FDA-Public Use
  Company Number: IT-JNJFOC-20061002866

PATIENT
  Age: 60 Year
  Sex: Male

DRUGS (5)
  1. TOPAMAX [Suspect]
     Indication: STATUS EPILEPTICUS
     Route: 048
  2. TICLID [Suspect]
     Indication: THROMBOSIS PROPHYLAXIS
     Route: 048
  3. LASIX [Concomitant]
     Route: 065
  4. CORDARONE [Concomitant]
     Route: 065
  5. AUGMENTIN '125' [Concomitant]
     Route: 065

REACTIONS (2)
  - AGRANULOCYTOSIS [None]
  - SEPSIS [None]
